FAERS Safety Report 9713691 (Version 3)
Quarter: 2014Q1

REPORT INFORMATION
  Report Type: Spontaneous
  Country: JP (occurrence: JP)
  Receive Date: 20131126
  Receipt Date: 20140219
  Transmission Date: 20141002
  Serious: Yes (Hospitalization)
  Sender: FDA-Public Use
  Company Number: JP-BRISTOL-MYERS SQUIBB COMPANY-19815869

PATIENT
  Age: 85 Year
  Sex: Female

DRUGS (1)
  1. ORENCIA FOR INJ 250 MG/VIAL [Suspect]
     Indication: RHEUMATOID ARTHRITIS
     Dosage: 18-OCT-2013, LAST DOSE; THERAPY INTTER.
     Route: 042
     Dates: start: 20130328

REACTIONS (2)
  - Pancreatitis [Unknown]
  - White blood cell count increased [Recovering/Resolving]
